FAERS Safety Report 5234792-9 (Version None)
Quarter: 2007Q1

REPORT INFORMATION
  Report Type: 
  Country: None (occurrence: None)
  Receive Date: 20070209
  Receipt Date: 20070129
  Transmission Date: 20070707
  Serious: Yes (Hospitalization, Other)
  Sender: FDA-Public Use
  Company Number: US-PFIZER INC-2006153391

PATIENT
  Sex: Female
  Weight: 74.8 kg

DRUGS (2)
  1. CELEBREX [Suspect]
     Indication: ARTHRITIS
  2. CELEBREX [Suspect]
     Indication: PAIN MANAGEMENT

REACTIONS (7)
  - AMNESIA [None]
  - ASTHENIA [None]
  - CONVULSION [None]
  - INJURY [None]
  - MYOCARDIAL INFARCTION [None]
  - PANIC ATTACK [None]
  - WEIGHT INCREASED [None]
